FAERS Safety Report 9382322 (Version 1)
Quarter: 2013Q3

REPORT INFORMATION
  Report Type: Spontaneous
  Country: FR (occurrence: FR)
  Receive Date: 20130703
  Receipt Date: 20130703
  Transmission Date: 20140515
  Serious: Yes (Hospitalization, Disabling)
  Sender: FDA-Public Use
  Company Number: FR-PFIZER INC-2013192219

PATIENT
  Age: 39 Year
  Sex: Female

DRUGS (3)
  1. ARACYTINE [Suspect]
     Indication: BURKITT^S LYMPHOMA
     Dosage: 40 MG, CYCLIC
     Route: 037
     Dates: start: 20130326, end: 20130529
  2. DEPO-MEDROL [Suspect]
     Indication: BURKITT^S LYMPHOMA
     Dosage: 40 MG, CYCLIC
     Route: 037
     Dates: start: 20130326, end: 20130529
  3. METHOTREXATE [Suspect]
     Indication: BURKITT^S LYMPHOMA
     Dosage: 15 MG, CYCLIC
     Route: 037
     Dates: start: 20130326, end: 20130529

REACTIONS (2)
  - Myelitis [Not Recovered/Not Resolved]
  - Paraplegia [Not Recovered/Not Resolved]
